FAERS Safety Report 9123159 (Version 2)
Quarter: 2013Q2

REPORT INFORMATION
  Report Type: Spontaneous
  Country: US (occurrence: US)
  Receive Date: 20130227
  Receipt Date: 20130508
  Transmission Date: 20140414
  Serious: No
  Sender: FDA-Public Use
  Company Number: US-PFIZER INC-2013069373

PATIENT
  Age: 65 Year
  Sex: Female
  Weight: 107.94 kg

DRUGS (6)
  1. ADVIL [Suspect]
     Dosage: UNK
  2. ERYTHROMYCIN [Suspect]
     Dosage: UNK
  3. MOTRIN [Suspect]
     Dosage: UNK
  4. GENTAMICIN [Suspect]
     Dosage: UNK
  5. NUPRIN [Suspect]
     Dosage: UNK
  6. MEDIPREN [Suspect]
     Dosage: UNK

REACTIONS (1)
  - Drug hypersensitivity [Unknown]
